FAERS Safety Report 24770361 (Version 1)
Quarter: 2024Q4

REPORT INFORMATION
  Report Type: Spontaneous
  Country: US (occurrence: US)
  Receive Date: 20241224
  Receipt Date: 20241224
  Transmission Date: 20250115
  Serious: Yes (Hospitalization, Other)
  Sender: NOVARTIS
  Company Number: US-002147023-NVSC2024US240402

PATIENT
  Age: 11 Year
  Sex: Male

DRUGS (2)
  1. ALPELISIB [Suspect]
     Active Substance: ALPELISIB
     Indication: PIK3CA related overgrowth spectrum
     Dosage: 125 MG, QD (ONCE DAILY)
     Route: 048
     Dates: start: 20230901, end: 20241201
  2. ALPELISIB [Suspect]
     Active Substance: ALPELISIB
     Dosage: 50 MG
     Route: 065
     Dates: start: 2023

REACTIONS (4)
  - Subarachnoid haemorrhage [Unknown]
  - Intracranial pressure increased [Unknown]
  - Secondary hypertension [Unknown]
  - Pain [Unknown]

NARRATIVE: CASE EVENT DATE: 20241210
